FAERS Safety Report 12840652 (Version 2)
Quarter: 2020Q1

REPORT INFORMATION
  Report Type: Spontaneous
  Country: US (occurrence: US)
  Receive Date: 20161012
  Receipt Date: 20200115
  Transmission Date: 20200409
  Serious: No
  Sender: FDA-Public Use
  Company Number: US-SHIRE-US201614153

PATIENT

DRUGS (2)
  1. VPRIV [Suspect]
     Active Substance: VELAGLUCERASE ALFA
     Dosage: UNK UNK, UNKNOWN
     Route: 065
     Dates: start: 20140601
  2. VPRIV [Suspect]
     Active Substance: VELAGLUCERASE ALFA
     Indication: GAUCHER^S DISEASE
     Dosage: UNK UNK, UNKNOWN
     Route: 041
     Dates: start: 20130601

REACTIONS (2)
  - Drug ineffective [Unknown]
  - Adverse event [Unknown]
